FAERS Safety Report 14179013 (Version 1)
Quarter: 2017Q4

REPORT INFORMATION
  Report Type: Spontaneous
  Country: GB (occurrence: GB)
  Receive Date: 20171110
  Receipt Date: 20171110
  Transmission Date: 20180321
  Serious: Yes (Disabling)
  Sender: FDA-Public Use
  Company Number: GB-PFIZER INC-2017481437

PATIENT
  Age: 54 Year
  Sex: Female
  Weight: 89 kg

DRUGS (12)
  1. CARBOCISTEINE [Concomitant]
     Active Substance: CARBOCYSTEINE
     Dosage: 2 DF, 3X/DAY
     Dates: start: 20140530
  2. VENTOLINE /00139502/ [Concomitant]
     Active Substance: ALBUTEROL SULFATE
     Dosage: 1 DF, AS NEEDED
     Route: 055
     Dates: start: 20170705
  3. COCODAMOL [Concomitant]
     Active Substance: ACETAMINOPHEN\CODEINE PHOSPHATE
     Dosage: UNK UNK, 4X/DAY (TAKE 1 OR 2 4 TIMES/DAY)
     Dates: start: 20121220
  4. AMINOPHYLLINE. [Concomitant]
     Active Substance: AMINOPHYLLINE
     Dosage: 1 DF, 2X/WEEK
     Dates: start: 20130212
  5. TIOTROPIUM [Concomitant]
     Active Substance: TIOTROPIUM
     Dosage: 1 DF, 1X/DAY
     Route: 055
     Dates: start: 20141110
  6. DOXYCYCLINE MONOHYDRATE [Suspect]
     Active Substance: DOXYCYCLINE
     Dosage: UNK
     Dates: start: 20161110
  7. AZITHROMYCIN ANHYDROUS. [Concomitant]
     Active Substance: AZITHROMYCIN ANHYDROUS
     Dosage: 1 DF, UNK (THREE TIMES A WEEK ON MONDAYS,WEDNE...)
     Dates: start: 20141110
  8. SALBUTAMOL [Concomitant]
     Active Substance: ALBUTEROL
     Dosage: 2 DF, AS NEEDED
     Route: 055
     Dates: start: 20121220
  9. BETAMETHASONE VALERATE. [Concomitant]
     Active Substance: BETAMETHASONE VALERATE
     Dosage: 1 DF, 2X/DAY (APPLIED)
     Dates: start: 20130212
  10. RANITIDINE. [Concomitant]
     Active Substance: RANITIDINE
     Dosage: 1 DF, 2X/DAY
     Dates: start: 20130212
  11. CITALOPRAM [Concomitant]
     Active Substance: CITALOPRAM HYDROBROMIDE
     Dosage: 1 DF, 1X/DAY
     Dates: start: 20150527
  12. FOSTAIR [Concomitant]
     Active Substance: BECLOMETHASONE\FORMOTEROL
     Dosage: 2 DF, 2X/DAY
     Dates: start: 20170705

REACTIONS (1)
  - Malaise [Recovered/Resolved]

NARRATIVE: CASE EVENT DATE: 20171026
